FAERS Safety Report 17511712 (Version 1)
Quarter: 2020Q1

REPORT INFORMATION
  Report Type: Spontaneous
  Country: US (occurrence: US)
  Receive Date: 20200307
  Receipt Date: 20200307
  Transmission Date: 20200409
  Serious: Yes (Other)
  Sender: FDA-Public Use
  Company Number: US-TEVA-2020-US-1194863

PATIENT
  Sex: Female

DRUGS (1)
  1. GABAPENTIN. [Suspect]
     Active Substance: GABAPENTIN
     Indication: HYPERSENSITIVITY
     Route: 065

REACTIONS (6)
  - Substance use disorder [Unknown]
  - Emotional disorder [Unknown]
  - Intestinal obstruction [Unknown]
  - Constipation [Unknown]
  - Brain injury [Unknown]
  - Pain [Unknown]
